FAERS Safety Report 21907686 (Version 1)
Quarter: 2023Q1

REPORT INFORMATION
  Report Type: Spontaneous
  Country: CA (occurrence: CA)
  Receive Date: 20230125
  Receipt Date: 20230125
  Transmission Date: 20230417
  Serious: Yes (Other)
  Sender: FDA-Public Use
  Company Number: None

PATIENT
  Age: 54 Year
  Sex: Female

DRUGS (8)
  1. DOCETAXEL [Suspect]
     Active Substance: DOCETAXEL
     Indication: HER2 positive breast cancer
     Route: 065
  2. ALDESLEUKIN [Suspect]
     Active Substance: ALDESLEUKIN
     Indication: HER2 positive breast cancer
     Dosage: EVERY 2 WEEKS
     Route: 026
  3. TRASTUZUMAB [Suspect]
     Active Substance: TRASTUZUMAB
     Indication: HER2 positive breast cancer
     Route: 065
  4. ADO-TRASTUZUMAB EMTANSINE [Suspect]
     Active Substance: ADO-TRASTUZUMAB EMTANSINE
     Indication: HER2 positive breast cancer
     Route: 065
  5. VINORELBINE [Suspect]
     Active Substance: VINORELBINE TARTRATE
     Indication: HER2 positive breast cancer
     Route: 065
  6. CAPECITABINE [Concomitant]
     Active Substance: CAPECITABINE
     Indication: HER2 positive breast cancer
     Route: 065
  7. IMIQUIMOD [Concomitant]
     Active Substance: IMIQUIMOD
     Indication: HER2 positive breast cancer
     Dosage: EVERY 2 WEEKS, TOPICAL
  8. PACLITAXEL [Concomitant]
     Active Substance: PACLITAXEL
     Indication: HER2 positive breast cancer
     Route: 042

REACTIONS (6)
  - Cardiotoxicity [Recovered/Resolved]
  - Drug ineffective [Unknown]
  - Ejection fraction decreased [Recovered/Resolved]
  - Fatigue [Recovered/Resolved]
  - Injection site erythema [Recovered/Resolved]
  - Pyrexia [Recovered/Resolved]
